FAERS Safety Report 24280036 (Version 2)
Quarter: 2024Q4

REPORT INFORMATION
  Report Type: Spontaneous
  Country: FR (occurrence: FR)
  Receive Date: 20240904
  Receipt Date: 20241217
  Transmission Date: 20250115
  Serious: Yes (Life-Threatening, Hospitalization, Other)
  Sender: SANDOZ
  Company Number: None

PATIENT
  Age: 16 Year
  Sex: Female

DRUGS (3)
  1. AMOXICILLIN [Suspect]
     Active Substance: AMOXICILLIN
     Indication: Suicide attempt
     Dosage: UNK
     Route: 048
  2. COLCHICINE [Suspect]
     Active Substance: COLCHICINE
     Indication: Suicide attempt
     Dosage: UNK
     Route: 048
  3. ACETAMINOPHEN [Suspect]
     Active Substance: ACETAMINOPHEN
     Indication: Suicide attempt
     Dosage: UNK
     Route: 048

REACTIONS (16)
  - Toxicity to various agents [Recovered/Resolved]
  - Subdural haematoma [Unknown]
  - Craniocerebral injury [Unknown]
  - Hypovolaemia [Recovered/Resolved]
  - Subarachnoid haemorrhage [Unknown]
  - Hepatic enzyme increased [Unknown]
  - Intentional overdose [Unknown]
  - Haemodynamic instability [Unknown]
  - Suicide attempt [Recovered/Resolved]
  - Coagulopathy [Recovered/Resolved]
  - Leukocytosis [Recovered/Resolved]
  - Metabolic acidosis [Recovered/Resolved]
  - Myocardial necrosis marker increased [Recovered/Resolved]
  - Hypertrophic cardiomyopathy [Recovered/Resolved]
  - Toxicity to various agents [Recovered/Resolved]
  - Thrombocytopenia [Recovered/Resolved]
